FAERS Safety Report 7919663-9 (Version None)
Quarter: 2011Q4

REPORT INFORMATION
  Report Type: 
  Country: None (occurrence: None)
  Receive Date: 20111115
  Receipt Date: 20111107
  Transmission Date: 20120403
  Serious: Yes (Life-Threatening, Other)
  Sender: FDA-Public Use
  Company Number: 2011SGN00291

PATIENT
  Age: 38 Year
  Sex: Female

DRUGS (2)
  1. FLUCONAZOLE [Concomitant]
  2. ADCETRIS [Suspect]
     Indication: DIFFUSE LARGE B-CELL LYMPHOMA STAGE IV
     Dosage: 1.8 MG/KG, Q21D
     Dates: start: 20110919, end: 20111001

REACTIONS (4)
  - PROGRESSIVE MULTIFOCAL LEUKOENCEPHALOPATHY [None]
  - DEMYELINATION [None]
  - APHASIA [None]
  - JC VIRUS TEST POSITIVE [None]
